FAERS Safety Report 10061544 (Version 1)
Quarter: 2014Q2

REPORT INFORMATION
  Report Type: Spontaneous
  Country: US (occurrence: US)
  Receive Date: 20140407
  Receipt Date: 20140407
  Transmission Date: 20141212
  Serious: No
  Sender: FDA-Public Use
  Company Number: US-BAYER-2014-051367

PATIENT
  Sex: 0

DRUGS (1)
  1. MAGNEVIST [Suspect]
     Indication: ARTHROGRAM
     Dosage: COMPOUNDED INJECTION DID NOT GET ALL 10-MLS OF MAGNEVIST
     Dates: start: 20140327

REACTIONS (1)
  - Drug ineffective [None]
